FAERS Safety Report 4649782-4 (Version None)
Quarter: 2005Q2

REPORT INFORMATION
  Report Type: 
  Country: None (occurrence: None)
  Receive Date: 20050502
  Receipt Date: 20050418
  Transmission Date: 20051028
  Serious: Yes (Other)
  Sender: FDA-Public Use
  Company Number: PHEH2005US04509

PATIENT
  Age: 76 Year
  Sex: Female

DRUGS (7)
  1. AREDIA [Suspect]
     Indication: MULTIPLE MYELOMA
     Dosage: 90MG QMO
     Dates: start: 19960801, end: 20010314
  2. ZOMETA [Suspect]
     Indication: MULTIPLE MYELOMA
     Dosage: 4MG QMO
     Dates: start: 20010411, end: 20030925
  3. INSULIN [Concomitant]
     Dates: start: 19870101
  4. IMMUNE GLOBULIN INTRAVENOUS (HUMAN) [Concomitant]
     Dosage: UNK MONTHLY
     Route: 042
  5. MELPHALAN [Concomitant]
     Indication: MULTIPLE MYELOMA
     Dosage: 12 MG X4DAYS
     Dates: start: 20010308
  6. PREDNISONE TABLETS USP (NGX) [Concomitant]
     Indication: MULTIPLE MYELOMA
     Dosage: 120MG X4D
     Dates: start: 20010308
  7. XELODA [Concomitant]

REACTIONS (14)
  - ASEPTIC NECROSIS BONE [None]
  - BACK PAIN [None]
  - BONE DEBRIDEMENT [None]
  - BONE DISORDER [None]
  - BONE PAIN [None]
  - FATIGUE [None]
  - GINGIVAL DISORDER [None]
  - GINGIVAL PAIN [None]
  - GINGIVAL ULCERATION [None]
  - HYPERAEMIA [None]
  - IMPAIRED HEALING [None]
  - SKIN CANCER [None]
  - TENDERNESS [None]
  - TOOTH EXTRACTION [None]
